FAERS Safety Report 24293035 (Version 1)
Quarter: 2024Q3

REPORT INFORMATION
  Report Type: Spontaneous
  Country: US (occurrence: None)
  Receive Date: 20240906
  Receipt Date: 20240906
  Transmission Date: 20241016
  Serious: No
  Sender: DOMPE FARMACEUTICI
  Company Number: US-FARMAPROD-202311-3358

PATIENT
  Age: 76 Year
  Sex: Female

DRUGS (12)
  1. OXERVATE [Suspect]
     Active Substance: CENEGERMIN-BKBJ
     Indication: Neurotrophic keratopathy
     Route: 047
     Dates: start: 20231106
  2. OXERVATE [Suspect]
     Active Substance: CENEGERMIN-BKBJ
  3. OXERVATE [Suspect]
     Active Substance: CENEGERMIN-BKBJ
  4. LATANOPROST [Concomitant]
     Active Substance: LATANOPROST
  5. TIMOLOL-BRIMONIDIN-DORZOLAMIDE [Concomitant]
  6. LORATADINE [Concomitant]
     Active Substance: LORATADINE
  7. LOSARTAN POTASSIUM [Concomitant]
     Active Substance: LOSARTAN POTASSIUM
  8. ATORVASTATIN CALCIUM [Concomitant]
     Active Substance: ATORVASTATIN CALCIUM
  9. IBUPROFEN [Concomitant]
     Active Substance: IBUPROFEN
  10. METFORMIN HYDROCHLORIDE [Concomitant]
     Active Substance: METFORMIN HYDROCHLORIDE
  11. RYBELSUS [Concomitant]
     Active Substance: SEMAGLUTIDE
  12. MULTIVITAMIN 50 PLUS [Concomitant]

REACTIONS (6)
  - Blood glucose increased [Not Recovered/Not Resolved]
  - Vision blurred [Unknown]
  - Eye pain [Unknown]
  - Drug ineffective [Unknown]
  - Product storage error [Recovered/Resolved]
  - Product administration error [Unknown]

NARRATIVE: CASE EVENT DATE: 20231106
